FAERS Safety Report 12707556 (Version 2)
Quarter: 2016Q3

REPORT INFORMATION
  Report Type: Report from Study
  Country: DE (occurrence: DE)
  Receive Date: 20160901
  Receipt Date: 20160909
  Transmission Date: 20161109
  Serious: Yes (Death, Hospitalization)
  Sender: FDA-Public Use
  Company Number: DE-ABBVIE-16K-062-1715445-00

PATIENT
  Age: 65 Year
  Sex: Female

DRUGS (1)
  1. DUODOPA [Suspect]
     Active Substance: CARBIDOPA\LEVODOPA
     Indication: PARKINSON^S DISEASE
     Dosage: MD: 8.0 ML; CRD: 2.3 ML/H; ED: 3.0 ML
     Route: 050
     Dates: start: 20141127, end: 20160825

REACTIONS (2)
  - Seizure [Not Recovered/Not Resolved]
  - Death [Fatal]

NARRATIVE: CASE EVENT DATE: 20160825
